FAERS Safety Report 4485687-X (Version None)
Quarter: 2004Q4

REPORT INFORMATION
  Report Type: 
  Country: None (occurrence: None)
  Receive Date: 20041026
  Receipt Date: 20040824
  Transmission Date: 20050328
  Serious: Yes (Hospitalization, Disabling, Other)
  Sender: FDA-Public Use
  Company Number: US-GLAXOSMITHKLINE-A0523314A

PATIENT
  Age: 53 Year
  Sex: Female

DRUGS (2)
  1. LAMICTAL [Suspect]
     Indication: ILL-DEFINED DISORDER
     Route: 048
  2. DEPAKOTE [Concomitant]

REACTIONS (5)
  - BLINDNESS [None]
  - INFLUENZA [None]
  - NONSPECIFIC REACTION [None]
  - RASH [None]
  - SKIN DESQUAMATION [None]
